FAERS Safety Report 7632406-1 (Version None)
Quarter: 2011Q3

REPORT INFORMATION
  Report Type: 
  Country: None (occurrence: None)
  Receive Date: 20110725
  Receipt Date: 20100825
  Transmission Date: 20111222
  Serious: No
  Sender: FDA-Public Use
  Company Number: US-BRISTOL-MYERS SQUIBB COMPANY-15255888

PATIENT
  Age: 87 Year
  Sex: Female
  Weight: 56 kg

DRUGS (5)
  1. COUMADIN [Suspect]
     Indication: ATRIAL FIBRILLATION
     Dosage: DUR: AROUND 10 YRS;1DF: ONE 5MG TAB ON SUN,MON,WED + 1/2 5MG TAB ON THE REMAINING DAYS OF THE WEEK;
  2. LEVOTHYROXINE SODIUM [Concomitant]
  3. LIPITOR [Concomitant]
  4. DARVOCET [Concomitant]
  5. METOPROLOL TARTRATE [Concomitant]

REACTIONS (1)
  - OCULAR HYPERAEMIA [None]
